FAERS Safety Report 7986361-5 (Version None)
Quarter: 2011Q4

REPORT INFORMATION
  Report Type: 
  Country: None (occurrence: None)
  Receive Date: 20111216
  Receipt Date: 20101210
  Transmission Date: 20120403
  Serious: No
  Sender: FDA-Public Use
  Company Number: US-GLAXOSMITHKLINE-A0899329A

PATIENT
  Age: 59 Year
  Sex: Female

DRUGS (6)
  1. ASPIRIN [Concomitant]
  2. ZOLOFT [Concomitant]
  3. COREG CR [Suspect]
     Indication: HYPERTENSION
     Dosage: 10MG PER DAY
     Route: 048
     Dates: start: 20090901
  4. SPIRONOLACTONE [Concomitant]
  5. PREMPRO [Concomitant]
  6. DITROPAN XL [Concomitant]

REACTIONS (2)
  - HYPERHIDROSIS [None]
  - FEELING HOT [None]
